FAERS Safety Report 11382367 (Version 1)
Quarter: 2015Q3

REPORT INFORMATION
  Report Type: Spontaneous
  Country: US (occurrence: US)
  Receive Date: 20150811
  Receipt Date: 20150811
  Transmission Date: 20151125
  Serious: No
  Sender: FDA-Public Use
  Company Number: US-ELI_LILLY_AND_COMPANY-US201006006248

PATIENT
  Age: 52 Year
  Sex: Male

DRUGS (5)
  1. COQ10 [Concomitant]
     Active Substance: UBIDECARENONE
     Dosage: 200 MG, UNKNOWN
     Route: 065
  2. MEGAMIN [Concomitant]
     Dosage: UNK, UNKNOWN
     Route: 065
  3. GINSENG /00480901/ [Concomitant]
     Dosage: UNK, UNKNOWN
     Route: 065
  4. CIALIS [Suspect]
     Active Substance: TADALAFIL
     Dosage: 20 MG, AS NEEDED
     Route: 065
  5. ANTIINFLAMMATORY/ANTIRHEUMATIC PRODUCTS [Concomitant]
     Active Substance: UNSPECIFIED INGREDIENT
     Indication: BACK DISORDER
     Dosage: UNK, UNKNOWN
     Route: 065

REACTIONS (4)
  - Drug ineffective [Unknown]
  - Nasal congestion [Recovered/Resolved]
  - Flushing [Recovered/Resolved]
  - Erectile dysfunction [Unknown]
